FAERS Safety Report 15148891 (Version 2)
Quarter: 2018Q3

REPORT INFORMATION
  Report Type: Spontaneous
  Country: CA (occurrence: CA)
  Receive Date: 20180716
  Receipt Date: 20180724
  Transmission Date: 20181010
  Serious: Yes (Death)
  Sender: FDA-Public Use
  Company Number: CA-PFIZER INC-2018278412

PATIENT
  Age: 46 Year
  Sex: Female

DRUGS (1)
  1. IBRANCE [Suspect]
     Active Substance: PALBOCICLIB
     Dosage: 125 MG CYCLIC(ONCE A DAY FOR 21 DAYS/28 DAYS)
     Route: 048
     Dates: start: 20170105, end: 20170602

REACTIONS (2)
  - Neoplasm progression [Unknown]
  - Death [Fatal]
